FAERS Safety Report 5961350-0 (Version None)
Quarter: 2008Q4

REPORT INFORMATION
  Report Type: 
  Country: None (occurrence: None)
  Receive Date: 20081119
  Receipt Date: 20081106
  Transmission Date: 20090506
  Serious: No
  Sender: FDA-Public Use
  Company Number: 20085656

PATIENT
  Sex: Female

DRUGS (3)
  1. LIORESAL [Suspect]
     Indication: MUSCLE SPASTICITY
     Dosage: 65-74.86 MCG, DAILY, INTRATHECAL
     Route: 039
  2. ORAL BACLOFEN [Concomitant]
  3. METHADONE HCL [Concomitant]

REACTIONS (17)
  - BACK PAIN [None]
  - BODY TEMPERATURE INCREASED [None]
  - BURNING SENSATION [None]
  - FEELING ABNORMAL [None]
  - FORMICATION [None]
  - GRIP STRENGTH DECREASED [None]
  - HYPERTONIA [None]
  - INAPPROPRIATE SCHEDULE OF DRUG ADMINISTRATION [None]
  - MUSCLE SPASMS [None]
  - MUSCLE SPASTICITY [None]
  - NO THERAPEUTIC RESPONSE [None]
  - PAIN [None]
  - PAIN IN EXTREMITY [None]
  - PARAESTHESIA [None]
  - SEDATION [None]
  - SOMNOLENCE [None]
  - TREMOR [None]
